FAERS Safety Report 15737855 (Version 1)
Quarter: 2018Q4

REPORT INFORMATION
  Report Type: Report from Study
  Country: US (occurrence: US)
  Receive Date: 20181219
  Receipt Date: 20181219
  Transmission Date: 20190205
  Serious: Yes (Hospitalization, Other)
  Sender: FDA-Public Use
  Company Number: US-AMGEN-USASL2018178345

PATIENT
  Age: 61 Year
  Sex: Male

DRUGS (1)
  1. REPATHA [Suspect]
     Active Substance: EVOLOCUMAB
     Indication: LOW DENSITY LIPOPROTEIN INCREASED
     Dosage: 140 MG, Q2WK
     Route: 065
     Dates: start: 2017, end: 201809

REACTIONS (12)
  - Mood swings [Unknown]
  - Blood glucose increased [Unknown]
  - Disturbance in attention [Unknown]
  - Memory impairment [Unknown]
  - Influenza like illness [Unknown]
  - Drug ineffective [Unknown]
  - Coronary artery occlusion [Unknown]
  - Carotid artery occlusion [Unknown]
  - Peripheral artery occlusion [Unknown]
  - Blood cholesterol decreased [Unknown]
  - Blood pressure increased [Unknown]
  - Temperature intolerance [Unknown]

NARRATIVE: CASE EVENT DATE: 2017
